FAERS Safety Report 20903411 (Version 1)
Quarter: 2022Q2

REPORT INFORMATION
  Report Type: Spontaneous
  Country: US (occurrence: US)
  Receive Date: 20220601
  Receipt Date: 20220601
  Transmission Date: 20220721
  Serious: No
  Sender: FDA-Public Use
  Company Number: US-AMGEN-USASP2022088851

PATIENT
  Sex: Male

DRUGS (2)
  1. REPATHA [Suspect]
     Active Substance: EVOLOCUMAB
     Indication: Cardiovascular disorder
     Dosage: 420 MILLIGRAM, QMO
     Route: 065
  2. NEXLETOL [Concomitant]
     Active Substance: BEMPEDOIC ACID

REACTIONS (1)
  - Drug effect less than expected [Unknown]
